FAERS Safety Report 13646680 (Version 1)
Quarter: 2017Q2

REPORT INFORMATION
  Report Type: Spontaneous
  Country: US (occurrence: US)
  Receive Date: 20170612
  Receipt Date: 20170612
  Transmission Date: 20170830
  Serious: No
  Sender: FDA-Public Use
  Company Number: None

PATIENT
  Age: 51 Year
  Sex: Female

DRUGS (1)
  1. IBRANCE [Suspect]
     Active Substance: PALBOCICLIB
     Dosage: 125MG QD X21D THEN PO
     Route: 048

REACTIONS (2)
  - Drug ineffective [None]
  - Therapy change [None]

NARRATIVE: CASE EVENT DATE: 20170601
